FAERS Safety Report 7928438-6 (Version None)
Quarter: 2011Q4

REPORT INFORMATION
  Report Type: 
  Country: None (occurrence: None)
  Receive Date: 20111118
  Receipt Date: 20111110
  Transmission Date: 20120403
  Serious: Yes (Disabling)
  Sender: FDA-Public Use
  Company Number: PHHY2011FR80146

PATIENT
  Sex: Female

DRUGS (3)
  1. STALEVO 100 [Suspect]
     Indication: PARKINSON'S DISEASE
     Dosage: 700 MG, DAILY
     Dates: start: 20100303, end: 20101027
  2. AMANTADINE HCL [Suspect]
     Dosage: 2 CP, DAILY
     Dates: start: 20100810, end: 20101027
  3. EXELON [Concomitant]
     Dosage: 12 MG, UNK
     Route: 048
     Dates: start: 20090806

REACTIONS (3)
  - CONFUSIONAL STATE [None]
  - SEDATION [None]
  - SOMNOLENCE [None]
